FAERS Safety Report 19027740 (Version 2)
Quarter: 2021Q3

REPORT INFORMATION
  Report Type: Spontaneous
  Country: US (occurrence: US)
  Receive Date: 20210318
  Receipt Date: 20210804
  Transmission Date: 20211014
  Serious: Yes (Other)
  Sender: FDA-Public Use
  Company Number: US-PURDUE-USA-2020-0181956

PATIENT
  Sex: Male

DRUGS (1)
  1. OXYCONTIN [Suspect]
     Active Substance: OXYCODONE HYDROCHLORIDE
     Indication: BACK PAIN
     Dosage: UNKNOWN
     Route: 048

REACTIONS (7)
  - Near death experience [Unknown]
  - Mental disorder [Recovering/Resolving]
  - Pain [Unknown]
  - Overdose [Recovering/Resolving]
  - Drug dependence [Recovering/Resolving]
  - Emotional distress [Unknown]
  - Aggression [Unknown]
